FAERS Safety Report 8027705-8 (Version None)
Quarter: 2012Q1

REPORT INFORMATION
  Report Type: 
  Country: None (occurrence: None)
  Receive Date: 20120106
  Receipt Date: 20100914
  Transmission Date: 20120608
  Serious: Yes (Other)
  Sender: FDA-Public Use
  Company Number: US-BAYER-201025782NA

PATIENT
  Age: 27 Year
  Sex: Female

DRUGS (4)
  1. YAZ [Suspect]
     Indication: CONTRACEPTION
     Dosage: UNK UNK, QD
     Route: 048
     Dates: start: 20061101, end: 20080101
  2. DROSPIRENONE AND ETHINYL ESTRADIOL [Suspect]
     Indication: ACNE
     Route: 048
  3. YASMIN [Suspect]
     Indication: ACNE
     Route: 048
  4. PHENTERMINE [Concomitant]
     Dosage: 37.5 MG, QD
     Route: 048

REACTIONS (16)
  - CHOLELITHIASIS [None]
  - HAEMANGIOMA OF LIVER [None]
  - MENSTRUATION IRREGULAR [None]
  - NAUSEA [None]
  - NERVOUSNESS [None]
  - INJURY [None]
  - CHOLECYSTITIS CHRONIC [None]
  - ABDOMINAL PAIN UPPER [None]
  - UPPER RESPIRATORY TRACT INFECTION [None]
  - PALPITATIONS [None]
  - PANCREATITIS [None]
  - HEPATIC LESION [None]
  - BILIARY COLIC [None]
  - ABDOMINAL PAIN [None]
  - BENIGN LYMPH NODE NEOPLASM [None]
  - VAGINAL HAEMORRHAGE [None]
